FAERS Safety Report 7808509-5 (Version None)
Quarter: 2011Q4

REPORT INFORMATION
  Report Type: 
  Country: None (occurrence: None)
  Receive Date: 20111012
  Receipt Date: 20111004
  Transmission Date: 20120403
  Serious: Yes (Hospitalization)
  Sender: FDA-Public Use
  Company Number: US-JNJFOC-20111003227

PATIENT
  Sex: Male
  Weight: 81.65 kg

DRUGS (4)
  1. RISPERDAL CONSTA [Suspect]
     Indication: SCHIZOPHRENIA
     Route: 030
     Dates: start: 20030101
  2. RISPERDAL CONSTA [Suspect]
     Route: 030
     Dates: start: 20030101
  3. RISPERDAL CONSTA [Suspect]
     Indication: BIPOLAR DISORDER
     Route: 030
     Dates: start: 20030101, end: 20030101
  4. RISPERDAL CONSTA [Suspect]
     Route: 030
     Dates: start: 20030101, end: 20030101

REACTIONS (4)
  - ABNORMAL BEHAVIOUR [None]
  - WEIGHT DECREASED [None]
  - EATING DISORDER [None]
  - DRUG EFFECT DECREASED [None]
